FAERS Safety Report 19518912 (Version 1)
Quarter: 2021Q3

REPORT INFORMATION
  Report Type: Spontaneous
  Country: US (occurrence: US)
  Receive Date: 20210712
  Receipt Date: 20210712
  Transmission Date: 20211014
  Serious: No
  Sender: FDA-Public Use
  Company Number: US-BAUSCH-BL-2021-018712

PATIENT
  Age: 79 Year
  Sex: Female

DRUGS (2)
  1. NEOMYCIN AND POLYMYXIN B SULFATES AND DEXAMETHASONE OPHTHALMIC SUSP [Suspect]
     Active Substance: DEXAMETHASONE\NEOMYCIN\POLYMYXIN B SULFATE
     Dosage: 1 DROP, EACH EYE TWICE DAILY
     Route: 047
  2. NEOMYCIN AND POLYMYXIN B SULFATES AND DEXAMETHASONE OPHTHALMIC SUSP [Suspect]
     Active Substance: DEXAMETHASONE\NEOMYCIN\POLYMYXIN B SULFATE
     Indication: PRODUCT USED FOR UNKNOWN INDICATION
     Dosage: 1 DROP, EACH EYE TWICE DAILY
     Route: 047

REACTIONS (5)
  - Incorrect dose administered [Unknown]
  - Therapy interrupted [Unknown]
  - Eye pain [Not Recovered/Not Resolved]
  - Product administration error [Unknown]
  - Product packaging quantity issue [Unknown]
